APPROVED DRUG PRODUCT: PROMETHAZINE HYDROCHLORIDE
Active Ingredient: PROMETHAZINE HYDROCHLORIDE
Strength: 50MG/ML **Federal Register determination that product was not discontinued or withdrawn for safety or effectiveness reasons**
Dosage Form/Route: INJECTABLE;INJECTION
Application: A040454 | Product #002
Applicant: TEVA PHARMACEUTICALS USA
Approved: Aug 22, 2002 | RLD: No | RS: No | Type: DISCN